FAERS Safety Report 8257252-X (Version None)
Quarter: 2012Q2

REPORT INFORMATION
  Report Type: 
  Country: None (occurrence: None)
  Receive Date: 20120403
  Receipt Date: 20120326
  Transmission Date: 20120825
  Serious: Yes (Hospitalization)
  Sender: FDA-Public Use
  Company Number: JP-AMGEN-JPNCT2012006512

PATIENT
  Age: 66 Year
  Sex: Male
  Weight: 51 kg

DRUGS (5)
  1. IRINOTECAN HCL [Suspect]
     Indication: COLORECTAL CANCER
     Dosage: 200 MG, Q2WK
     Route: 041
     Dates: start: 20111003, end: 20111017
  2. FLUOROURACIL [Suspect]
     Dosage: 3500 MG, Q2WK
     Route: 041
     Dates: start: 20111003, end: 20111017
  3. PANITUMUMAB [Suspect]
     Indication: LARGE INTESTINE CARCINOMA
     Dosage: 300 MG, Q2WK
     Route: 041
     Dates: start: 20111003, end: 20111017
  4. FLUOROURACIL [Suspect]
     Indication: COLORECTAL CANCER
     Dosage: 500 MG, Q2WK
     Route: 040
     Dates: start: 20111003, end: 20111017
  5. LEUCOVORIN CALCIUM [Suspect]
     Indication: COLORECTAL CANCER
     Dosage: 200 MG, Q2WK
     Route: 041
     Dates: start: 20111003, end: 20111017

REACTIONS (1)
  - INTERSTITIAL LUNG DISEASE [None]
